FAERS Safety Report 7048845-6 (Version None)
Quarter: 2010Q4

REPORT INFORMATION
  Report Type: 
  Country: None (occurrence: None)
  Receive Date: 20101018
  Receipt Date: 20101007
  Transmission Date: 20110411
  Serious: Yes (Hospitalization)
  Sender: FDA-Public Use
  Company Number: FR-ASTRAZENECA-2010SE47645

PATIENT
  Age: 60 Year
  Sex: Male

DRUGS (6)
  1. CRESTOR [Suspect]
     Route: 048
     Dates: start: 20100614
  2. PLAVIX [Suspect]
     Route: 048
     Dates: start: 20100614, end: 20100626
  3. KARDEGIC [Concomitant]
     Dates: start: 20100614
  4. CARDENSIEL [Concomitant]
     Dates: start: 20100614
  5. FONZYLANE [Concomitant]
     Dates: start: 20100624
  6. NITRODERM [Concomitant]
     Route: 062
     Dates: start: 20100624

REACTIONS (2)
  - CHEST PAIN [None]
  - MYALGIA [None]
